FAERS Safety Report 4333237-0 (Version None)
Quarter: 2004Q1

REPORT INFORMATION
  Report Type: 
  Country: None (occurrence: None)
  Receive Date: 20040330
  Receipt Date: 20040318
  Transmission Date: 20041129
  Serious: Yes (Hospitalization)
  Sender: FDA-Public Use
  Company Number: 04P-163-0254116-00

PATIENT
  Age: 59 Year
  Sex: Female

DRUGS (6)
  1. ISOPTIN SR [Suspect]
     Dosage: 180 MG, 1 IN 1 D, PER ORAL
     Route: 048
  2. RALOXIFENE HCL [Concomitant]
  3. CYCLOBENZAPRINE HCL [Concomitant]
  4. LORATADINE [Concomitant]
  5. PRAVASTATIN [Concomitant]
  6. ROFECOXIB [Concomitant]

REACTIONS (14)
  - BACTERIA URINE IDENTIFIED [None]
  - CARDIAC FAILURE CONGESTIVE [None]
  - CHEST DISCOMFORT [None]
  - CHILLS [None]
  - DIZZINESS [None]
  - HYPERHIDROSIS [None]
  - HYPOTENSION [None]
  - HYPOXIA [None]
  - LEGIONELLA INFECTION [None]
  - NAUSEA [None]
  - NODAL RHYTHM [None]
  - PULMONARY EMBOLISM [None]
  - SINOATRIAL BLOCK [None]
  - TACHYPNOEA [None]
